FAERS Safety Report 4957985-4 (Version None)
Quarter: 2006Q1

REPORT INFORMATION
  Report Type: 
  Country: None (occurrence: None)
  Receive Date: 20060324
  Receipt Date: 20060307
  Transmission Date: 20060701
  Serious: Yes (Hospitalization)
  Sender: FDA-Public Use
  Company Number: AU200603004027

PATIENT
  Age: 53 Year
  Sex: Female

DRUGS (2)
  1. ZYPREXA [Suspect]
     Indication: BIPOLAR DISORDER
     Dosage: 10 MG DAILY 1/D ORAL
     Route: 048
  2. VALPROATE SODIUM [Concomitant]

REACTIONS (2)
  - BIPOLAR DISORDER [None]
  - OEDEMA [None]
